FAERS Safety Report 6152071-2 (Version None)
Quarter: 2009Q2

REPORT INFORMATION
  Report Type: 
  Country: None (occurrence: None)
  Receive Date: 20090408
  Receipt Date: 20090323
  Transmission Date: 20091009
  Serious: Yes (Hospitalization)
  Sender: FDA-Public Use
  Company Number: 8044390

PATIENT
  Age: 82 Year
  Sex: Female

DRUGS (18)
  1. KEPPRA [Suspect]
     Dosage: 1 DF 1/2D PO
     Route: 048
     Dates: start: 20090127, end: 20090210
  2. PANTOPRAZOLE SODIUM [Suspect]
     Dosage: 20 MG /D PO
     Route: 048
     Dates: start: 20090123, end: 20090210
  3. FLUDEX 	/00340101/ [Suspect]
     Dosage: 1.5 MG /D PO
     Route: 048
     Dates: start: 20090127, end: 20090205
  4. DIAMICRON [Suspect]
     Dosage: 30 MG /D PO
     Route: 048
     Dates: start: 20090127, end: 20090205
  5. GLUCOPHAGE [Suspect]
     Dosage: 1 DF 1/ 2D
     Dates: start: 20090203
  6. NICARDIPINE HCL [Suspect]
  7. AUGMENTIN [Suspect]
     Dosage: PO
     Route: 048
     Dates: start: 20090123, end: 20090202
  8. CO-APROVEL [Concomitant]
  9. HYPERIUM /00939801/ [Concomitant]
  10. ZANIDIP [Concomitant]
  11. INSULATARD /00030504/ [Concomitant]
  12. DIASTABOL [Concomitant]
  13. LEVOTHYROXINE SODIUM [Concomitant]
  14. SINTROM [Concomitant]
  15. ALLOPURINOL 200 [Concomitant]
  16. LESCOL /01224501/ [Concomitant]
  17. COVERSYL  /00790701/ [Concomitant]
  18. URBANYL [Concomitant]

REACTIONS (5)
  - DISTURBANCE IN ATTENTION [None]
  - DRUG HYPERSENSITIVITY [None]
  - ELECTROENCEPHALOGRAM ABNORMAL [None]
  - IMMUNE SYSTEM DISORDER [None]
  - THROMBOCYTOPENIA [None]
